FAERS Safety Report 7485672-X (Version None)
Quarter: 2011Q2

REPORT INFORMATION
  Report Type: 
  Country: None (occurrence: None)
  Receive Date: 20110509
  Receipt Date: 20110504
  Transmission Date: 20111010
  Serious: Yes (Death, Hospitalization, Disabling, Other)
  Sender: FDA-Public Use
  Company Number: 2010SP034645

PATIENT
  Age: 27 Year
  Sex: Female
  Weight: 52.6173 kg

DRUGS (7)
  1. RETIN-A [Concomitant]
  2. NUVARING [Suspect]
     Indication: MUSCLE SPASMS
     Dates: start: 20080424, end: 20080620
  3. NUVARING [Suspect]
     Indication: ENDOMETRIOSIS
     Dates: start: 20080424, end: 20080620
  4. KETOCONAZOLE [Concomitant]
  5. DOXYCYCLINE HYCLATE [Concomitant]
  6. CLEOCIN [Concomitant]
  7. TRIAMCINOLONE [Concomitant]

REACTIONS (40)
  - INTRACRANIAL VENOUS SINUS THROMBOSIS [None]
  - HAEMATOMA [None]
  - MENSTRUAL DISORDER [None]
  - PHARYNGEAL ABSCESS [None]
  - PERITONEAL ABSCESS [None]
  - SUBARACHNOID HAEMORRHAGE [None]
  - DYSPAREUNIA [None]
  - SEASONAL ALLERGY [None]
  - ANEURYSM [None]
  - HYDROCEPHALUS [None]
  - BRAIN ABSCESS [None]
  - PSEUDOMONAS INFECTION [None]
  - ACINETOBACTER INFECTION [None]
  - FUNGAL INFECTION [None]
  - URINARY TRACT INFECTION [None]
  - PAINFUL DEFAECATION [None]
  - INSULIN RESISTANCE [None]
  - CEREBROVASCULAR ACCIDENT [None]
  - MIGRAINE [None]
  - BRAIN HERNIATION [None]
  - RESPIRATORY FAILURE [None]
  - STAPHYLOCOCCAL INFECTION [None]
  - ENTEROCOCCAL INFECTION [None]
  - CAROTID ARTERY STENOSIS [None]
  - MENINGITIS BACTERIAL [None]
  - CNS VENTRICULITIS [None]
  - MENTAL STATUS CHANGES [None]
  - WISDOM TEETH REMOVAL [None]
  - BRONCHOPNEUMONIA [None]
  - POST PROCEDURAL COMPLICATION [None]
  - CONVULSION [None]
  - ANXIETY [None]
  - DIARRHOEA [None]
  - INTRACRANIAL PRESSURE INCREASED [None]
  - SUBDURAL HAEMATOMA [None]
  - WEANING FAILURE [None]
  - HYPOXIC-ISCHAEMIC ENCEPHALOPATHY [None]
  - SERRATIA TEST POSITIVE [None]
  - INTRACRANIAL HYPOTENSION [None]
  - SHUNT INFECTION [None]
